FAERS Safety Report 21867211 (Version 3)
Quarter: 2025Q1

REPORT INFORMATION
  Report Type: Report from Study
  Country: CH (occurrence: CH)
  Receive Date: 20230116
  Receipt Date: 20250218
  Transmission Date: 20250409
  Serious: Yes (Hospitalization, Other)
  Sender: PFIZER
  Company Number: CH-PFM-2023-00238

PATIENT
  Age: 69 Year
  Sex: Female

DRUGS (8)
  1. ENCORAFENIB [Suspect]
     Active Substance: ENCORAFENIB
     Dosage: 450 MG, QD (1/DAY)
     Route: 048
     Dates: start: 20221006, end: 20221026
  2. ENCORAFENIB [Suspect]
     Active Substance: ENCORAFENIB
     Route: 048
     Dates: end: 20221114
  3. ENCORAFENIB [Suspect]
     Active Substance: ENCORAFENIB
     Route: 048
     Dates: end: 20221129
  4. ENCORAFENIB [Suspect]
     Active Substance: ENCORAFENIB
     Dosage: 225 MG, QD (1/DAY)
     Route: 048
     Dates: start: 20230126, end: 20230201
  5. BINIMETINIB [Suspect]
     Active Substance: BINIMETINIB
     Dosage: 45 MG, BID (2/DAY)
     Route: 048
     Dates: start: 20221006, end: 20221026
  6. BINIMETINIB [Suspect]
     Active Substance: BINIMETINIB
     Route: 048
     Dates: start: 20221102, end: 20221114
  7. BINIMETINIB [Suspect]
     Active Substance: BINIMETINIB
     Route: 048
     Dates: end: 20221229
  8. BINIMETINIB [Suspect]
     Active Substance: BINIMETINIB
     Dosage: 30 MG, BID (2/DAY)
     Dates: start: 20230127, end: 20230201

REACTIONS (1)
  - Hepatitis viral [Recovering/Resolving]

NARRATIVE: CASE EVENT DATE: 20221025
